FAERS Safety Report 18709877 (Version 1)
Quarter: 2021Q1

REPORT INFORMATION
  Report Type: Other
  Country: US (occurrence: US)
  Receive Date: 20210107
  Receipt Date: 20210107
  Transmission Date: 20210419
  Serious: Yes (Hospitalization)
  Sender: FDA-Public Use
  Company Number: US-ROCHE-2741906

PATIENT
  Sex: Female
  Weight: 78.09 kg

DRUGS (1)
  1. OCREVUS [Suspect]
     Active Substance: OCRELIZUMAB
     Indication: RELAPSING-REMITTING MULTIPLE SCLEROSIS
     Route: 042
     Dates: start: 202002

REACTIONS (3)
  - Postural orthostatic tachycardia syndrome [Not Recovered/Not Resolved]
  - COVID-19 [Unknown]
  - Therapeutic response shortened [Unknown]
